FAERS Safety Report 5235139-4 (Version None)
Quarter: 2007Q1

REPORT INFORMATION
  Report Type: 
  Country: None (occurrence: None)
  Receive Date: 20070207
  Receipt Date: 20070126
  Transmission Date: 20070707
  Serious: Yes (Other)
  Sender: FDA-Public Use
  Company Number: CHNY2007FR00714

PATIENT
  Age: 35 Year
  Sex: Female

DRUGS (3)
  1. NICOTINE [Suspect]
     Indication: SMOKING CESSATION THERAPY
     Dosage: 21 MG QD TRANSDERMAL
     Route: 062
     Dates: start: 20070121
  2. ALPRAZOLAM [Concomitant]
  3. LANSOPRAZOLE [Concomitant]

REACTIONS (4)
  - APPLICATION SITE PAIN [None]
  - GASTROENTERITIS [None]
  - PRURITUS GENERALISED [None]
  - RASH MACULAR [None]
